FAERS Safety Report 25342539 (Version 2)
Quarter: 2025Q3

REPORT INFORMATION
  Report Type: Spontaneous
  Country: US (occurrence: US)
  Receive Date: 20250521
  Receipt Date: 20250820
  Transmission Date: 20251020
  Serious: No
  Sender: CATALYST PHARMA
  Company Number: US-CATALYST PHARMACEUTICALS-US-CATA-25-00470

PATIENT
  Age: 8 Year
  Sex: Male
  Weight: 42.24 kg

DRUGS (2)
  1. AGAMREE [Suspect]
     Active Substance: VAMOROLONE
     Indication: Duchenne muscular dystrophy
     Dosage: 4.9 ML ONCE A DAY
     Route: 048
     Dates: start: 20240914, end: 20250324
  2. AGAMREE [Suspect]
     Active Substance: VAMOROLONE
     Dosage: 4.2 ML ONCE A DAY
     Route: 048
     Dates: start: 20250325

REACTIONS (1)
  - Palpitations [Not Recovered/Not Resolved]

NARRATIVE: CASE EVENT DATE: 20240901
